FAERS Safety Report 5699269-5 (Version None)
Quarter: 2008Q2

REPORT INFORMATION
  Report Type: 
  Country: None (occurrence: None)
  Receive Date: 20080404
  Receipt Date: 20080321
  Transmission Date: 20081010
  Serious: Yes (Other)
  Sender: FDA-Public Use
  Company Number: CHPA2008US04703

PATIENT
  Age: 52 Year
  Sex: Male

DRUGS (2)
  1. WALMART/EQUATE (NCH)(NICOTINE) TRANSDERMAL  TRANS-THERAPEUTIC-SYSTEM [Suspect]
     Indication: SMOKING CESSATION THERAPY
     Dosage: 14 MG, ONCE/SINGLE,  TRANSDERMAL
     Route: 062
     Dates: start: 20080310, end: 20080310
  2. DRUG THERAPY NOS (DRUG THERAPY NOS) [Concomitant]

REACTIONS (4)
  - DIZZINESS [None]
  - HALLUCINATION [None]
  - HEADACHE [None]
  - STOMACH DISCOMFORT [None]
